FAERS Safety Report 11752938 (Version 1)
Quarter: 2015Q4

REPORT INFORMATION
  Report Type: Spontaneous
  Country: US (occurrence: None)
  Receive Date: 20151117
  Receipt Date: 20151117
  Transmission Date: 20160304
  Serious: No
  Sender: FDA-Public Use
  Company Number: None

PATIENT
  Age: 61 Year
  Sex: Male
  Weight: 75.75 kg

DRUGS (2)
  1. VIEKIRA PAK [Suspect]
     Active Substance: DASABUVIR\OMBITASVIR\PARITAPREVIR\RITONAVIR
     Indication: CHRONIC HEPATITIS C
     Dosage: TAKE 2 (PINK) TABS ONCE DAILY IN AM, 1?BID?PO?
     Route: 048
     Dates: start: 20150803, end: 20151027
  2. RIBAVIRIN 200 MG TAB ZYDUS [Suspect]
     Active Substance: RIBAVIRIN
     Indication: CHRONIC HEPATITIS C
     Dosage: 3 TABS (600) IN AM AND 2 TABS (400) IN
     Route: 048
     Dates: start: 20150803, end: 20151027

REACTIONS (3)
  - Dyspnoea [None]
  - Rash [None]
  - Abdominal pain upper [None]

NARRATIVE: CASE EVENT DATE: 20151027
